FAERS Safety Report 12711927 (Version 2)
Quarter: 2016Q4

REPORT INFORMATION
  Report Type: Report from Study
  Country: FR (occurrence: FR)
  Receive Date: 20160902
  Receipt Date: 20161026
  Transmission Date: 20170207
  Serious: Yes (Other)
  Sender: FDA-Public Use
  Company Number: FR-ROCHE-1824263

PATIENT

DRUGS (1)
  1. ALTEPLASE [Suspect]
     Active Substance: ALTEPLASE
     Indication: ISCHAEMIC STROKE
     Dosage: INITIAL 10% DOSE AS BOLUS FOLLOWED BY INFUSION OF THE REMAINING DOSE OVER 60 MINUTES
     Route: 042

REACTIONS (1)
  - Intracranial pressure increased [Unknown]
